FAERS Safety Report 5067628-X (Version None)
Quarter: 2006Q3

REPORT INFORMATION
  Report Type: 
  Country: None (occurrence: None)
  Receive Date: 20060728
  Receipt Date: 20060713
  Transmission Date: 20061208
  Serious: Yes (Hospitalization, Other)
  Sender: FDA-Public Use
  Company Number: WAES 0607ARG00003

PATIENT
  Age: 30 Year
  Sex: Male

DRUGS (3)
  1. CRIXIVAN [Suspect]
  2. LAMIVUDINE [Concomitant]
  3. ZIDOVUDINE [Concomitant]

REACTIONS (1)
  - OSTEONECROSIS [None]
